FAERS Safety Report 5276956-4 (Version None)
Quarter: 2007Q1

REPORT INFORMATION
  Report Type: 
  Country: None (occurrence: None)
  Receive Date: 20070327
  Receipt Date: 20070313
  Transmission Date: 20070707
  Serious: Yes (Hospitalization)
  Sender: FDA-Public Use
  Company Number: GBWYE020814MAR07

PATIENT
  Sex: Male
  Weight: 32 kg

DRUGS (21)
  1. ENBREL [Suspect]
     Indication: RHEUMATOID ARTHRITIS
     Route: 058
     Dates: start: 20061001, end: 20061009
  2. ENBREL [Suspect]
     Route: 058
     Dates: start: 20061013, end: 20061019
  3. ENBREL [Suspect]
     Dosage: UNKNOWN
     Route: 058
     Dates: start: 20061021
  4. METHOTREXATE [Concomitant]
     Dosage: UNKNOWN
     Dates: end: 20061009
  5. METHOTREXATE [Concomitant]
     Route: 058
     Dates: start: 20061013, end: 20061019
  6. METHOTREXATE [Concomitant]
     Dosage: UNKNOWN
     Dates: start: 20061021
  7. IBUPROFEN [Concomitant]
     Dosage: UNKNOWN
     Dates: end: 20061001
  8. IBUPROFEN [Concomitant]
     Dosage: 300 MG EVERY 1 PRN
     Route: 048
     Dates: start: 20061001
  9. FOLIC ACID [Concomitant]
     Dosage: UNKNOWN
     Dates: end: 20061009
  10. CEPHALEXIN [Concomitant]
     Dosage: UNKNOWN
     Dates: end: 20061001
  11. POTASSIUM ACETATE [Concomitant]
     Route: 048
     Dates: start: 20061001
  12. RANITIDINE [Concomitant]
     Route: 048
     Dates: start: 20061001
  13. RANITIDINE [Concomitant]
     Dosage: UNKNOWN
     Route: 042
     Dates: start: 20061020, end: 20061023
  14. CIPROFLOXACIN [Concomitant]
     Route: 048
     Dates: start: 20061001
  15. ACETAMINOPHEN [Concomitant]
     Route: 048
     Dates: start: 20061001
  16. METRONIDAZOLE [Concomitant]
     Dosage: UNKNOWN
  17. METRONIDAZOLE [Concomitant]
     Route: 048
     Dates: start: 20061023, end: 20061024
  18. METRONIDAZOLE [Concomitant]
     Route: 042
     Dates: start: 20061019, end: 20061023
  19. PREDNISOLONE [Concomitant]
     Dosage: UNKNOWN
     Route: 048
     Dates: end: 20061001
  20. PREDNISOLONE [Concomitant]
     Dosage: 10MG AM AND 5MG PM
     Route: 048
     Dates: start: 20061023
  21. PREDNISOLONE [Concomitant]
     Dosage: 10MG AM AND 5MG PM
     Route: 048
     Dates: start: 20060901

REACTIONS (2)
  - ARTHRITIS [None]
  - SEPSIS [None]
